FAERS Safety Report 4326134-8 (Version None)
Quarter: 2004Q1

REPORT INFORMATION
  Report Type: 
  Country: None (occurrence: None)
  Receive Date: 20040324
  Receipt Date: 20040315
  Transmission Date: 20041129
  Serious: Yes (Hospitalization, Disabling, Other)
  Sender: FDA-Public Use
  Company Number: 2003036407

PATIENT
  Age: 63 Year
  Sex: Male

DRUGS (3)
  1. TAHOR (ATORVASTATIN) [Suspect]
     Indication: HYPERCHOLESTEROLAEMIA
  2. ALL OTHER THERAPEUTIC PRODUCTS [Suspect]
     Indication: ILL-DEFINED DISORDER
  3. ANTIEPILEPTICS [Suspect]
     Indication: EPILEPSY

REACTIONS (3)
  - CHROMATOPSIA [None]
  - OPTIC NEURITIS [None]
  - VISUAL ACUITY REDUCED [None]
